FAERS Safety Report 22177247 (Version 1)
Quarter: 2023Q2

REPORT INFORMATION
  Report Type: Report from Study
  Country: CA (occurrence: CA)
  Receive Date: 20230405
  Receipt Date: 20230405
  Transmission Date: 20230721
  Serious: Yes (Other)
  Sender: FDA-Public Use
  Company Number: CA-GILEAD-2023-0617767

PATIENT
  Sex: Female

DRUGS (4)
  1. SACITUZUMAB GOVITECAN-HZIY [Suspect]
     Active Substance: SACITUZUMAB GOVITECAN-HZIY
     Indication: Triple negative breast cancer
     Dosage: 700 MG
     Route: 042
     Dates: start: 20221229
  2. SACITUZUMAB GOVITECAN-HZIY [Suspect]
     Active Substance: SACITUZUMAB GOVITECAN-HZIY
     Dosage: 748 MG
     Route: 042
  3. SACITUZUMAB GOVITECAN-HZIY [Suspect]
     Active Substance: SACITUZUMAB GOVITECAN-HZIY
     Dosage: 785 MG
     Route: 042
  4. PLATINUM [Concomitant]
     Active Substance: PLATINUM

REACTIONS (3)
  - Disease progression [Unknown]
  - Weight fluctuation [Unknown]
  - Incorrect dose administered [Unknown]
